FAERS Safety Report 25970236 (Version 1)
Quarter: 2025Q4

REPORT INFORMATION
  Report Type: Spontaneous
  Country: CN (occurrence: CN)
  Receive Date: 20251028
  Receipt Date: 20251028
  Transmission Date: 20260118
  Serious: Yes (Life-Threatening, Hospitalization)
  Sender: NOVARTIS
  Company Number: CN-002147023-NVSC2025CN165032

PATIENT
  Age: 35 Year
  Sex: Male

DRUGS (7)
  1. CYCLOSPORINE [Suspect]
     Active Substance: CYCLOSPORINE
     Indication: Immunosuppressant drug therapy
     Dosage: 35 MG, BID
     Route: 065
  2. IMMUNE GLOBULIN NOS [Suspect]
     Active Substance: IMMUNE GLOBULIN NOS
     Indication: Haematochezia
     Dosage: 10 G, QD (FOR 3 CONSECUTIVE DAYS)
     Route: 042
  3. THALIDOMIDE [Suspect]
     Active Substance: THALIDOMIDE
     Indication: Haematochezia
     Dosage: 100 MG, QD (AT NIGHT)
     Route: 048
  4. THALIDOMIDE [Suspect]
     Active Substance: THALIDOMIDE
     Indication: Immunosuppressant drug therapy
  5. INFLIXIMAB [Suspect]
     Active Substance: INFLIXIMAB
     Indication: Haematochezia
     Dosage: 250-300 MG (5 MG/KG) ON WEEKS 0, 2, AND 6 FOLLOWED BY MAINTENANCE INFUSIONS AT 8-WEEK INTERVALS
     Route: 050
  6. VALPROATE SODIUM [Concomitant]
     Active Substance: VALPROATE SODIUM
     Indication: Seizure
     Dosage: UNK
     Route: 048
  7. TENOFOVIR DISOPROXIL FUMARATE [Concomitant]
     Active Substance: TENOFOVIR DISOPROXIL FUMARATE
     Indication: Hepatitis B
     Dosage: 25 MG, QD
     Route: 065

REACTIONS (4)
  - Hyperkalaemia [Unknown]
  - Drug ineffective [Unknown]
  - Tubulointerstitial nephritis [Recovering/Resolving]
  - Renal tubular necrosis [Recovering/Resolving]
